FAERS Safety Report 4975498-0 (Version None)
Quarter: 2006Q2

REPORT INFORMATION
  Report Type: 
  Country: None (occurrence: None)
  Receive Date: 20060417
  Receipt Date: 20060417
  Transmission Date: 20061013
  Serious: No
  Sender: FDA-Public Use
  Company Number: None

PATIENT
  Age: 53 Year
  Sex: Male
  Weight: 80.831 kg

DRUGS (1)
  1. MARINOL [Suspect]
     Dosage: 2.5 MG, 1 CUP PO TID 5 CUPS PO QHS
     Route: 048
     Dates: start: 20060405

REACTIONS (2)
  - PAROSMIA [None]
  - PHARMACEUTICAL PRODUCT COMPLAINT [None]
